FAERS Safety Report 6681575-9 (Version None)
Quarter: 2010Q2

REPORT INFORMATION
  Report Type: 
  Country: None (occurrence: None)
  Receive Date: 20100413
  Receipt Date: 20100413
  Transmission Date: 20101027
  Serious: Yes (Hospitalization)
  Sender: FDA-Public Use
  Company Number: None

PATIENT
  Sex: Female
  Weight: 50.9 kg

DRUGS (6)
  1. METHOTREXATE [Suspect]
     Dosage: 60 MG
     Dates: end: 20100331
  2. PEG-L-ASPARAGINASE (K-H) [Suspect]
     Dosage: 8200 UNIT
     Dates: end: 20100324
  3. VINCRISTINE SULFATE [Suspect]
     Dosage: 4 MG
     Dates: end: 20100331
  4. CYCLOPHOSPHAMIDE [Suspect]
     Dosage: 1640 MG
     Dates: end: 20100310
  5. CYTARABINE [Suspect]
     Dosage: 984 MG
     Dates: end: 20100320
  6. MERCAPTOPURINE [Suspect]
     Dosage: 1400 MG
     Dates: end: 20100323

REACTIONS (3)
  - CONVULSION [None]
  - PYREXIA [None]
  - SUPERIOR SAGITTAL SINUS THROMBOSIS [None]
